FAERS Safety Report 5327935-X (Version None)
Quarter: 2007Q2

REPORT INFORMATION
  Report Type: 
  Country: None (occurrence: None)
  Receive Date: 20070517
  Receipt Date: 20070508
  Transmission Date: 20071010
  Serious: Yes (Hospitalization, Other)
  Sender: FDA-Public Use
  Company Number: US-PFIZER INC-2006032822

PATIENT
  Sex: Male

DRUGS (3)
  1. DILANTIN [Suspect]
     Indication: CONVULSION
  2. LYRICA [Interacting]
     Indication: CONVULSION
     Route: 048
     Dates: start: 20060222, end: 20060224
  3. PHENOBARBITAL TAB [Interacting]
     Indication: CONVULSION

REACTIONS (14)
  - ANTICONVULSANT DRUG LEVEL ABOVE THERAPEUTIC [None]
  - BRAIN DAMAGE [None]
  - CONCUSSION [None]
  - CONFUSIONAL STATE [None]
  - CONVULSION [None]
  - DIZZINESS [None]
  - DRUG INTERACTION [None]
  - EYE INJURY [None]
  - FALL [None]
  - MYDRIASIS [None]
  - RETINAL DISORDER [None]
  - SOMNOLENCE [None]
  - THERAPEUTIC AGENT TOXICITY [None]
  - WEIGHT DECREASED [None]
